FAERS Safety Report 10149349 (Version 1)
Quarter: 2014Q2

REPORT INFORMATION
  Report Type: Spontaneous
  Country: US (occurrence: None)
  Receive Date: 20140430
  Receipt Date: 20140430
  Transmission Date: 20141212
  Serious: No
  Sender: FDA-Public Use
  Company Number: None

PATIENT
  Age: 33 Year
  Sex: Female

DRUGS (3)
  1. WARFARIN [Suspect]
     Indication: THROMBOSIS PROPHYLAXIS
     Route: 048
     Dates: start: 20130701, end: 20131202
  2. PROCHLORPERAZINE [Concomitant]
  3. ONDANSETRON [Concomitant]

REACTIONS (4)
  - Abdominal mass [None]
  - Haemoglobin decreased [None]
  - Haemorrhagic ascites [None]
  - International normalised ratio increased [None]
